FAERS Safety Report 10475534 (Version 1)
Quarter: 2014Q3

REPORT INFORMATION
  Report Type: Spontaneous
  Country: IT (occurrence: IT)
  Receive Date: 20140925
  Receipt Date: 20140925
  Transmission Date: 20150326
  Serious: Yes (Hospitalization)
  Sender: FDA-Public Use
  Company Number: IT-BAYER-2014-140385

PATIENT
  Age: 20 Year
  Sex: Male

DRUGS (8)
  1. ACECLOFENAC [Suspect]
     Active Substance: ACECLOFENAC
     Dosage: 1500 MG, ONCE
     Dates: start: 20140815, end: 20140815
  2. TRANEX [Suspect]
     Active Substance: TRANEXAMIC ACID
     Dosage: 2500 MG, ONCE
     Dates: start: 20140815, end: 20140815
  3. VITAMIN-B-KOMPLEX STANDARD [Suspect]
     Active Substance: CYANOCOBALAMIN\PYRIDOXINE HYDROCHLORIDE\RIBOFLAVIN\SODIUM PANTOTHENATE\THIAMINE HYDROCHLORIDE\VITAMIN B COMPLEX
     Dosage: 10 DF, ONCE
     Route: 048
     Dates: start: 20140815, end: 20140815
  4. TACHIPIRINA [Suspect]
     Active Substance: ACETAMINOPHEN
     Dosage: 4000 MG, ONCE
     Dates: start: 20140815, end: 20140815
  5. ASPIRINA [Suspect]
     Active Substance: ASPIRIN
     Dosage: 2500 MG, ONCE
     Dates: start: 20140815, end: 20140815
  6. DELTACORTENE [Suspect]
     Active Substance: PREDNISONE
     Dosage: 75 MG, ONCE
     Dates: start: 20140815, end: 20140815
  7. IBUPROFEN [IBUPROFEN] [Suspect]
     Active Substance: IBUPROFEN
     Dosage: 1000 MG, ONCE
     Dates: start: 20140815, end: 20140815
  8. AERIUS [Suspect]
     Active Substance: DESLORATADINE
     Dosage: 50 MG, ONCE
     Dates: start: 20140815, end: 20140815

REACTIONS (1)
  - Suicide attempt [Recovered/Resolved]

NARRATIVE: CASE EVENT DATE: 20140815
